FAERS Safety Report 8616646 (Version 5)
Quarter: 2012Q4

REPORT INFORMATION
  Report Type: Report from Study
  Country: CA (occurrence: CA)
  Receive Date: 20120615
  Receipt Date: 20121012
  Transmission Date: 20130627
  Serious: Yes (Other)
  Sender: FDA-Public Use
  Company Number: CA-JNJFOC-20120603159

PATIENT
  Age: 64 None
  Sex: Female
  Weight: 105 kg

DRUGS (2)
  1. USTEKINUMAB [Suspect]
     Indication: PSORIASIS
     Dates: start: 201012, end: 201012
  2. CORTICOSTEROIDS [Concomitant]
     Route: 061

REACTIONS (1)
  - Ovarian cancer [Unknown]
